FAERS Safety Report 5147794-8 (Version None)
Quarter: 2006Q4

REPORT INFORMATION
  Report Type: 
  Country: None (occurrence: None)
  Receive Date: 20061110
  Receipt Date: 20061012
  Transmission Date: 20070319
  Serious: Yes (Other)
  Sender: FDA-Public Use
  Company Number: PHBS2006BE16038

PATIENT
  Age: 77 Year
  Sex: Female

DRUGS (7)
  1. NOLVADEX [Concomitant]
     Route: 065
  2. ARIMIDEX [Concomitant]
     Route: 065
  3. AROMASIN [Concomitant]
     Route: 065
  4. ADRIAMYCIN PFS [Concomitant]
     Dosage: UNK, EVERY WEEK
     Route: 065
     Dates: start: 20050901, end: 20060201
  5. FEMARA [Concomitant]
     Route: 065
  6. TAXOTERE [Concomitant]
     Dosage: UNK, EVERY WEEK
     Route: 065
     Dates: start: 20060701
  7. ZOMETA [Suspect]
     Indication: BREAST CANCER METASTATIC
     Dosage: 4 MG, EVERY 4 WEEKS
     Route: 065
     Dates: start: 20030601, end: 20060914

REACTIONS (8)
  - BONE DENSITY INCREASED [None]
  - MALIGNANT NEOPLASM PROGRESSION [None]
  - METASTASES TO LIVER [None]
  - METASTASES TO LUNG [None]
  - METASTASES TO SKIN [None]
  - OSTEONECROSIS [None]
  - TOOTH EXTRACTION [None]
  - WOUND DEBRIDEMENT [None]
